FAERS Safety Report 10361741 (Version 2)
Quarter: 2014Q3

REPORT INFORMATION
  Report Type: Spontaneous
  Country: US (occurrence: US)
  Receive Date: 20140805
  Receipt Date: 20140919
  Transmission Date: 20150326
  Serious: No
  Sender: FDA-Public Use
  Company Number: US-UCBSA-2014007438

PATIENT
  Age: 42 Year
  Sex: Male
  Weight: 105.2 kg

DRUGS (8)
  1. PHENOBARBITAL. [Concomitant]
     Active Substance: PHENOBARBITAL
     Indication: EPILEPSY
  2. VALIUM [Concomitant]
     Active Substance: DIAZEPAM
     Indication: EPILEPSY
  3. VIMPAT [Suspect]
     Active Substance: LACOSAMIDE
     Dosage: 100 MG, 2X/DAY (BID)
     Dates: start: 2014, end: 201404
  4. VIMPAT [Suspect]
     Active Substance: LACOSAMIDE
     Dosage: 200 MG IN AM AND 150 MG IN PM
     Route: 048
     Dates: start: 2014
  5. VIMPAT [Suspect]
     Active Substance: LACOSAMIDE
     Indication: CONVULSION
     Dosage: UNK
     Dates: start: 201403, end: 2014
  6. DEPAKOTE [Concomitant]
     Active Substance: DIVALPROEX SODIUM
     Indication: EPILEPSY
     Dosage: 1500 MG, 2X/DAY (BID); 500 MG BID THREE IN AM AND THREE IN PM
     Route: 048
  7. KEPPRA [Suspect]
     Active Substance: LEVETIRACETAM
     Indication: CONVULSION
     Dosage: 750 MG, 4X/DAY (QID)
     Dates: start: 2014, end: 2014
  8. KEPPRA [Suspect]
     Active Substance: LEVETIRACETAM
     Dosage: 375 MG IN AM AND 750 MG IN PM
     Route: 048
     Dates: start: 2014

REACTIONS (3)
  - Loss of consciousness [Recovered/Resolved]
  - Convulsion [Recovered/Resolved]
  - Mood swings [Not Recovered/Not Resolved]

NARRATIVE: CASE EVENT DATE: 2014
